FAERS Safety Report 25603013 (Version 1)
Quarter: 2025Q3

REPORT INFORMATION
  Report Type: Spontaneous
  Country: US (occurrence: US)
  Receive Date: 20250724
  Receipt Date: 20250724
  Transmission Date: 20251020
  Serious: No
  Sender: GALPHARM INTERNATIONAL
  Company Number: US-PERRIGO-25US003766

PATIENT
  Age: 81 Year
  Sex: Female

DRUGS (2)
  1. MOTRIN IB [Suspect]
     Active Substance: IBUPROFEN
     Indication: Musculoskeletal discomfort
     Dosage: 400 MG, TID
     Route: 048
     Dates: end: 202503
  2. TYLENOL [Suspect]
     Active Substance: ACETAMINOPHEN
     Indication: Peripheral swelling
     Route: 048

REACTIONS (1)
  - Peripheral swelling [Recovering/Resolving]
